FAERS Safety Report 6074564-9 (Version None)
Quarter: 2009Q1

REPORT INFORMATION
  Report Type: 
  Country: None (occurrence: None)
  Receive Date: 20090206
  Receipt Date: 20090127
  Transmission Date: 20090719
  Serious: Yes (Hospitalization)
  Sender: FDA-Public Use
  Company Number: SPV1-2009-00004

PATIENT
  Age: 21 Year
  Sex: Male

DRUGS (3)
  1. CARBATROL [Suspect]
     Indication: CONVULSION
     Dosage: 200 MG;TWO  CAPSULES IN AM; 3 CAPSULES IN PM DAILY, ORAL
     Route: 048
  2. RISPERDAL [Concomitant]
  3. ABILIFY [Concomitant]

REACTIONS (4)
  - ACCIDENT AT HOME [None]
  - PRODUCT QUALITY ISSUE [None]
  - PRURITUS [None]
  - THERMAL BURN [None]
